FAERS Safety Report 12639374 (Version 1)
Quarter: 2016Q3

REPORT INFORMATION
  Report Type: Spontaneous
  Country: US (occurrence: None)
  Receive Date: 20160809
  Receipt Date: 20160809
  Transmission Date: 20161109
  Serious: Yes (Other)
  Sender: FDA-Public Use
  Company Number: None

PATIENT
  Age: 30 Year
  Sex: Female
  Weight: 73.48 kg

DRUGS (9)
  1. VYVANSE [Concomitant]
     Active Substance: LISDEXAMFETAMINE DIMESYLATE
  2. NITROFURANTOIN MONO-MCR 100 MG, 100 MG [Suspect]
     Active Substance: NITROFURANTOIN
     Indication: URINARY TRACT INFECTION
     Route: 048
     Dates: start: 20160804, end: 20160808
  3. APRI OCP [Concomitant]
  4. DAILY MULTIVITAMIN [Concomitant]
     Active Substance: VITAMINS
  5. CLONAZEPAM. [Concomitant]
     Active Substance: CLONAZEPAM
  6. CALCIUM WITH VITAMIN D SUPPLEMENT [Concomitant]
  7. AZELAIC ACID (FINACEA) [Concomitant]
  8. TOPICAL SULFA-SULFACETAMIDE CLEANSER [Concomitant]
  9. CLINDAMYCIN TOPICAL GEL [Concomitant]

REACTIONS (18)
  - Therapy change [None]
  - Rash [None]
  - Inappropriate schedule of drug administration [None]
  - Abdominal pain upper [None]
  - Rash macular [None]
  - Nausea [None]
  - Paraesthesia [None]
  - Diarrhoea [None]
  - Swelling [None]
  - Cyanosis [None]
  - Hypoaesthesia [None]
  - Limb discomfort [None]
  - Headache [None]
  - Discomfort [None]
  - Lethargy [None]
  - Urticaria [None]
  - Dizziness [None]
  - Malaise [None]

NARRATIVE: CASE EVENT DATE: 20160808
